FAERS Safety Report 12393174 (Version 5)
Quarter: 2016Q3

REPORT INFORMATION
  Report Type: Spontaneous
  Country: US (occurrence: US)
  Receive Date: 20160523
  Receipt Date: 20160825
  Transmission Date: 20161109
  Serious: No
  Sender: FDA-Public Use
  Company Number: US-PFIZER INC-2016265494

PATIENT
  Age: 62 Year
  Sex: Female
  Weight: 76.64 kg

DRUGS (18)
  1. INSULIN ASPART [Concomitant]
     Active Substance: INSULIN ASPART
     Dosage: UNK
     Route: 058
  2. TERAZOL [Concomitant]
     Active Substance: TERCONAZOLE
     Dosage: 0.4 %, UNK
     Route: 061
  3. TOUJEO [Concomitant]
     Active Substance: INSULIN GLARGINE
     Dosage: 1.5 ML, UNK (300 UNIT/ML; INPN)
  4. PRAVACHOL [Concomitant]
     Active Substance: PRAVASTATIN SODIUM
     Dosage: 20 MG, UNK
  5. PREDNISONE. [Concomitant]
     Active Substance: PREDNISONE
     Dosage: 5 MG, DAILY
     Route: 048
  6. ULTRAVATE [Concomitant]
     Active Substance: HALOBETASOL PROPIONATE
     Dosage: 0.05 %, UNK
     Route: 061
  7. OMEPRAZOLE. [Concomitant]
     Active Substance: OMEPRAZOLE
     Dosage: UNK
     Route: 048
  8. PREDNISONE. [Concomitant]
     Active Substance: PREDNISONE
     Dosage: 5 MG, UNK  (2-3 TIMES A WEEK)
     Route: 048
  9. VOLTAREN [Concomitant]
     Active Substance: DICLOFENAC SODIUM
     Dosage: 2 G, 4X/DAY (1 %)
     Route: 061
  10. NOVOLOG [Concomitant]
     Active Substance: INSULIN ASPART
     Dosage: 100 UNK, UNK (100 UNIT/ML; INPN)
  11. XELJANZ [Suspect]
     Active Substance: TOFACITINIB CITRATE
     Indication: RHEUMATOID ARTHRITIS
     Dosage: 5 MG, 2X/DAY
  12. DIFLUCAN [Concomitant]
     Active Substance: FLUCONAZOLE
     Dosage: 150 MG, UNK
  13. IRBESARTAN- HYDROCHLOROTHIAZIDE [Concomitant]
     Dosage: 1 DF, DAILY (IRBESARTAN: 150; HYDROCHLOROTHIAZIDE: 12.5)
     Route: 048
  14. METHOTREXATE. [Concomitant]
     Active Substance: METHOTREXATE
     Dosage: UNK
  15. DELTASONE [Concomitant]
     Active Substance: PREDNISONE
     Dosage: 5 MG, 1X/DAY
     Route: 048
  16. XELJANZ [Suspect]
     Active Substance: TOFACITINIB CITRATE
     Dosage: 10 MG, UNK
     Dates: start: 201605
  17. ACTEMRA [Concomitant]
     Active Substance: TOCILIZUMAB
     Dosage: UNK, WEEKLY (162 MG/0.9 ML)
     Route: 058
  18. AVALIDE [Concomitant]
     Active Substance: HYDROCHLOROTHIAZIDE\IRBESARTAN
     Dosage: 1 DF, DAILY (HYDROCHLOROTHIAZIDE: 12.5 MG/IRBESARTAN: 150 MG)
     Route: 048

REACTIONS (9)
  - Dizziness [Recovered/Resolved]
  - Feeling abnormal [Recovered/Resolved]
  - Arthralgia [Unknown]
  - Chest discomfort [Recovered/Resolved]
  - Stress [Not Recovered/Not Resolved]
  - Drug tolerance [Unknown]
  - Headache [Unknown]
  - Fatigue [Recovered/Resolved]
  - Joint swelling [Unknown]
